FAERS Safety Report 8977379 (Version 1)
Quarter: 2012Q4

REPORT INFORMATION
  Report Type: 
  Country: AT (occurrence: AT)
  Receive Date: 20121220
  Receipt Date: 20121220
  Transmission Date: 20130627
  Serious: Yes (Hospitalization, Other)
  Sender: FDA-Public Use
  Company Number: AT-WATSON-2012-22100

PATIENT
  Age: 26 Year
  Sex: Male

DRUGS (1)
  1. FUROSEMIDE (UNKNOWN) [Suspect]
     Indication: MUSCLE BUILDING THERAPY
     Dosage: 80 mg, 2 doses
     Route: 048

REACTIONS (15)
  - Hypokalaemia [Recovered/Resolved]
  - Paralysis [Recovered/Resolved]
  - Nocturia [Recovered/Resolved]
  - Weight decreased [Recovered/Resolved]
  - Hyperglycaemia [Recovered/Resolved]
  - Hyperlactacidaemia [Recovered/Resolved]
  - Blood phosphorus decreased [Recovered/Resolved]
  - Aspartate aminotransferase increased [Recovered/Resolved]
  - Alanine aminotransferase increased [Recovered/Resolved]
  - Blood lactate dehydrogenase increased [Recovered/Resolved]
  - Blood creatine phosphokinase increased [Recovered/Resolved]
  - Blood creatine phosphokinase MB increased [Recovered/Resolved]
  - Troponin T increased [Recovered/Resolved]
  - Drug abuse [Recovered/Resolved]
  - Intentional drug misuse [Recovered/Resolved]
